FAERS Safety Report 18899669 (Version 1)
Quarter: 2021Q1

REPORT INFORMATION
  Report Type: Report from Study
  Country: CA (occurrence: CA)
  Receive Date: 20210216
  Receipt Date: 20210216
  Transmission Date: 20210420
  Serious: Yes (Other)
  Sender: FDA-Public Use
  Company Number: CA-PFIZER INC-2021106386

PATIENT
  Sex: Male

DRUGS (12)
  1. ACTEMRA [Suspect]
     Active Substance: TOCILIZUMAB
     Indication: LIMBIC ENCEPHALITIS
     Dosage: UNK
     Route: 042
  2. ALENDRONATE SODIUM. [Concomitant]
     Active Substance: ALENDRONATE SODIUM
  3. RITUXIMAB. [Suspect]
     Active Substance: RITUXIMAB
     Indication: LIMBIC ENCEPHALITIS
     Route: 065
  4. ACTEMRA [Suspect]
     Active Substance: TOCILIZUMAB
     Indication: NEOPLASM
  5. SEPTRA [Concomitant]
     Active Substance: SULFAMETHOXAZOLE\TRIMETHOPRIM
  6. ACTEMRA [Suspect]
     Active Substance: TOCILIZUMAB
     Indication: NEOPLASM
  7. CALCIUM [Concomitant]
     Active Substance: CALCIUM
  8. PREDNISONE. [Concomitant]
     Active Substance: PREDNISONE
  9. CLOBAZAM. [Concomitant]
     Active Substance: CLOBAZAM
  10. ACTEMRA [Suspect]
     Active Substance: TOCILIZUMAB
     Indication: LIMBIC ENCEPHALITIS
     Dosage: 162 MG, 1 EVERY 1 WEEK
     Route: 058
  11. APTIOM [Concomitant]
     Active Substance: ESLICARBAZEPINE ACETATE
  12. ZYPREXA [Concomitant]
     Active Substance: OLANZAPINE

REACTIONS (1)
  - Seizure [Unknown]
